FAERS Safety Report 17446345 (Version 3)
Quarter: 2020Q1

REPORT INFORMATION
  Report Type: Report from Study
  Country: US (occurrence: US)
  Receive Date: 20200221
  Receipt Date: 20200306
  Transmission Date: 20200409
  Serious: Yes (Death, Life-Threatening, Hospitalization)
  Sender: FDA-Public Use
  Company Number: US-EISAI MEDICAL RESEARCH-EC-2020-070337

PATIENT
  Age: 68 Year
  Sex: Female
  Weight: 59.3 kg

DRUGS (1)
  1. LENVIMA [Suspect]
     Active Substance: LENVATINIB
     Indication: UTERINE CANCER
     Route: 048
     Dates: start: 202002

REACTIONS (5)
  - Loss of consciousness [Unknown]
  - Blood pressure increased [Unknown]
  - Failure to thrive [Fatal]
  - Hyponatraemia [Fatal]
  - Heart rate irregular [Unknown]

NARRATIVE: CASE EVENT DATE: 202002
